FAERS Safety Report 7957948-0 (Version None)
Quarter: 2011Q4

REPORT INFORMATION
  Report Type: 
  Country: None (occurrence: None)
  Receive Date: 20111205
  Receipt Date: 20111125
  Transmission Date: 20120403
  Serious: Yes (Other)
  Sender: FDA-Public Use
  Company Number: CHPA2011US016754

PATIENT
  Age: 82 Year
  Sex: Female

DRUGS (5)
  1. SYNTHROID [Concomitant]
     Indication: THYROID DISORDER
  2. PREVACID 24 HR [Suspect]
     Indication: GASTROOESOPHAGEAL REFLUX DISEASE
     Dosage: 15 MG, ONCE/SINGLE
     Route: 048
     Dates: start: 20100101, end: 20100101
  3. DRUG THERAPY NOS [Interacting]
     Indication: ANXIETY
     Route: 065
  4. ATIVAN [Concomitant]
  5. DIOVAN [Concomitant]
     Indication: HYPERTENSION

REACTIONS (6)
  - IMMUNE SYSTEM DISORDER [None]
  - DRUG INTERACTION [None]
  - MALAISE [None]
  - LYMPHOMA [None]
  - FEELING ABNORMAL [None]
  - OFF LABEL USE [None]
